FAERS Safety Report 21377488 (Version 4)
Quarter: 2023Q1

REPORT INFORMATION
  Report Type: Report from Study
  Country: US (occurrence: US)
  Receive Date: 20220926
  Receipt Date: 20230203
  Transmission Date: 20230418
  Serious: Yes (Other)
  Sender: FDA-Public Use
  Company Number: US-GW PHARMA-2022-US-030185

PATIENT
  Sex: Female
  Weight: 103.86 kg

DRUGS (5)
  1. EPIDIOLEX [Suspect]
     Active Substance: CANNABIDIOL
     Indication: Epilepsy
     Dosage: 5 MILLILITER, BID
     Route: 048
     Dates: start: 20220824
  2. EPIDIOLEX [Suspect]
     Active Substance: CANNABIDIOL
     Dosage: 6 MILLILITER, BID
     Route: 048
     Dates: start: 202208
  3. EPIDIOLEX [Suspect]
     Active Substance: CANNABIDIOL
     Dosage: 12 MILLILITER
     Route: 048
     Dates: start: 20220824
  4. EPIDIOLEX [Suspect]
     Active Substance: CANNABIDIOL
     Dosage: 12 MILLILITER
     Route: 048
     Dates: start: 202209
  5. BACTRIM [Suspect]
     Active Substance: SULFAMETHOXAZOLE\TRIMETHOPRIM
     Indication: Product used for unknown indication
     Dosage: UNK

REACTIONS (13)
  - Foot operation [Unknown]
  - Pneumonia [Unknown]
  - Abnormal dreams [Unknown]
  - COVID-19 [Unknown]
  - Drug hypersensitivity [Unknown]
  - Illness [Unknown]
  - Weight increased [Unknown]
  - Somnolence [Unknown]
  - Peripheral swelling [Unknown]
  - Joint swelling [Unknown]
  - Coordination abnormal [Unknown]
  - Diplopia [Unknown]
  - Drug ineffective [Unknown]
